FAERS Safety Report 8471518 (Version 2)
Quarter: 2017Q2

REPORT INFORMATION
  Report Type: Report from Study
  Country: DK (occurrence: DK)
  Receive Date: 20120322
  Receipt Date: 20170413
  Transmission Date: 20170830
  Serious: Yes (Hospitalization)
  Sender: FDA-Public Use
  Company Number: DK-ASTELLAS-2012US002836

PATIENT
  Age: 83 Year
  Sex: Female

DRUGS (1)
  1. ERLOTINIB [Suspect]
     Active Substance: ERLOTINIB
     Indication: NON-SMALL CELL LUNG CANCER
     Route: 048
     Dates: start: 20120214, end: 20120306

REACTIONS (7)
  - Oral fungal infection [Recovered/Resolved]
  - Drug eruption [Unknown]
  - Weight decreased [Unknown]
  - Appetite disorder [Unknown]
  - Dehydration [Unknown]
  - Dizziness [Unknown]
  - Diarrhoea [Unknown]

NARRATIVE: CASE EVENT DATE: 20120309
